FAERS Safety Report 17800028 (Version 2)
Quarter: 2020Q2

REPORT INFORMATION
  Report Type: Spontaneous
  Country: DE (occurrence: DE)
  Receive Date: 20200518
  Receipt Date: 20200622
  Transmission Date: 20200714
  Serious: Yes (Hospitalization, Other)
  Sender: FDA-Public Use
  Company Number: DE-ELI_LILLY_AND_COMPANY-DE202005002446

PATIENT
  Age: 76 Year
  Sex: Female

DRUGS (5)
  1. OLUMIANT [Suspect]
     Active Substance: BARICITINIB
     Dosage: 4 UNK
     Route: 048
     Dates: start: 20200414
  2. PANTOZOLE [Concomitant]
     Active Substance: PANTOPRAZOLE SODIUM
     Dosage: 40 MG, UNKNOWN
     Dates: start: 20190704
  3. OLUMIANT [Suspect]
     Active Substance: BARICITINIB
     Indication: RHEUMATOID ARTHRITIS
     Dosage: 4 MG, UNKNOWN
     Route: 048
     Dates: start: 20170823, end: 20200313
  4. DEKRISTOL [Concomitant]
     Active Substance: CHOLECALCIFEROL
     Dosage: 20000 DOSAGE FORM, OTHER
     Dates: start: 20160725
  5. PROLIA [Concomitant]
     Active Substance: DENOSUMAB
     Dosage: 60 MG, OTHER
     Dates: start: 20151013

REACTIONS (9)
  - Pulmonary embolism [Recovered/Resolved]
  - Oedema peripheral [Unknown]
  - Anaemia folate deficiency [Unknown]
  - Fall [Unknown]
  - Humerus fracture [Unknown]
  - Shock [Unknown]
  - Muscle haemorrhage [Unknown]
  - Bundle branch block right [Unknown]
  - Blood thyroid stimulating hormone increased [Unknown]

NARRATIVE: CASE EVENT DATE: 201811
